FAERS Safety Report 24572766 (Version 1)
Quarter: 2024Q4

REPORT INFORMATION
  Report Type: Spontaneous
  Country: SG (occurrence: SG)
  Receive Date: 20241101
  Receipt Date: 20241101
  Transmission Date: 20250115
  Serious: Yes (Other)
  Sender: ELI LILLY AND COMPANY
  Company Number: SG-ELI_LILLY_AND_COMPANY-SG202410019874

PATIENT

DRUGS (1)
  1. SELPERCATINIB [Suspect]
     Active Substance: SELPERCATINIB
     Indication: Product used for unknown indication
     Dosage: 160MG IN THE MORNING, 80 MG IN THE EVENING
     Route: 065

REACTIONS (2)
  - Nephrotic syndrome [Unknown]
  - Chronic kidney disease [Unknown]
